FAERS Safety Report 12302887 (Version 2)
Quarter: 2016Q2

REPORT INFORMATION
  Report Type: Spontaneous
  Country: US (occurrence: US)
  Receive Date: 20160426
  Receipt Date: 20160429
  Transmission Date: 20160815
  Serious: No
  Sender: FDA-Public Use
  Company Number: US-BIOGEN-2016BI00219729

PATIENT

DRUGS (1)
  1. AVONEX [Suspect]
     Active Substance: INTERFERON BETA-1A
     Indication: MULTIPLE SCLEROSIS
     Route: 065

REACTIONS (6)
  - Influenza like illness [Unknown]
  - Anxiety [Unknown]
  - Gait disturbance [Unknown]
  - Asthenia [Unknown]
  - Balance disorder [Unknown]
  - General symptom [Unknown]
